FAERS Safety Report 9442669 (Version 1)
Quarter: 2013Q3

REPORT INFORMATION
  Report Type: Spontaneous
  Country: CH (occurrence: CH)
  Receive Date: 20130806
  Receipt Date: 20130806
  Transmission Date: 20140515
  Serious: Yes (Hospitalization)
  Sender: FDA-Public Use
  Company Number: CH-PFIZER INC-2013211182

PATIENT
  Age: 54 Year
  Sex: Male

DRUGS (4)
  1. CELEBREX [Suspect]
     Indication: ARTHRALGIA
     Dosage: 200 MG, 2X/DAY
     Route: 048
     Dates: start: 20130716, end: 20130716
  2. SORTIS [Concomitant]
     Dosage: 10 MG, UNK
     Route: 048
  3. COVERSUM [Concomitant]
     Dosage: 5 MG, UNK
     Route: 048
  4. PANTOPRAZOL [Concomitant]
     Dosage: 40 MG, UNK
     Route: 048

REACTIONS (3)
  - Anaphylactic reaction [Recovered/Resolved]
  - Dyspnoea [Recovered/Resolved]
  - Flushing [Recovered/Resolved]
